FAERS Safety Report 9433238 (Version 2)
Quarter: 2013Q3

REPORT INFORMATION
  Report Type: Spontaneous
  Country: JP (occurrence: JP)
  Receive Date: 20130731
  Receipt Date: 20130807
  Transmission Date: 20140515
  Serious: Yes (Other)
  Sender: FDA-Public Use
  Company Number: JP-GLAXOSMITHKLINE-B0909021A

PATIENT
  Age: 42 Year
  Sex: Female

DRUGS (3)
  1. PAXIL [Suspect]
     Indication: DEPRESSION
     Dosage: 20MG PER DAY
     Route: 048
  2. ABILIFY [Concomitant]
     Route: 048
  3. UNKNOWN DRUG [Concomitant]
     Route: 065

REACTIONS (3)
  - Helicobacter infection [Unknown]
  - Feeling abnormal [Unknown]
  - Decreased appetite [Unknown]
